FAERS Safety Report 8234168-6 (Version None)
Quarter: 2012Q1

REPORT INFORMATION
  Report Type: 
  Country: None (occurrence: None)
  Receive Date: 20120326
  Receipt Date: 20120319
  Transmission Date: 20120608
  Serious: Yes (Hospitalization)
  Sender: FDA-Public Use
  Company Number: US-BRISTOL-MYERS SQUIBB COMPANY-16403602

PATIENT
  Age: 92 Year
  Sex: Female

DRUGS (9)
  1. AMLODIPINE [Concomitant]
  2. LASIX [Concomitant]
  3. METFORMIN HCL [Concomitant]
  4. IRON [Concomitant]
  5. FERROUS SULFATE TAB [Concomitant]
  6. COUMADIN [Suspect]
     Indication: DEEP VEIN THROMBOSIS
     Dates: end: 20120101
  7. POTASSIUM [Concomitant]
  8. SOLIRIS [Suspect]
     Indication: PAROXYSMAL NOCTURNAL HAEMOGLOBINURIA
     Dosage: 600MG: MAR10-ONG.900MG Q2W 2010-UNK CON FOR SOLN 10MG/ML.STRENGTH-300MG
     Route: 042
     Dates: start: 20100301
  9. FOLIC ACID [Concomitant]

REACTIONS (5)
  - HAEMORRHOIDS [None]
  - RECTAL HAEMORRHAGE [None]
  - ABDOMINAL PAIN [None]
  - DIVERTICULITIS [None]
  - GASTRIC POLYPS [None]
